FAERS Safety Report 10178635 (Version 1)
Quarter: 2014Q2

REPORT INFORMATION
  Report Type: Report from Study
  Country: CA (occurrence: CA)
  Receive Date: 20140519
  Receipt Date: 20140519
  Transmission Date: 20141212
  Serious: Yes (Other)
  Sender: FDA-Public Use
  Company Number: CA-JNJFOC-20140507408

PATIENT
  Age: 47 Year
  Sex: Male
  Weight: 122 kg

DRUGS (4)
  1. REMICADE [Suspect]
     Indication: COLITIS ULCERATIVE
     Route: 042
     Dates: start: 20120412
  2. BENADRYL [Concomitant]
     Indication: PREMEDICATION
     Dosage: 25 (UNITS UNSPECIFIED)
     Route: 042
  3. SOLUCORTEF [Concomitant]
     Indication: PREMEDICATION
     Route: 042
  4. TYLENOL [Concomitant]
     Indication: PREMEDICATION
     Route: 048

REACTIONS (7)
  - Dementia [Unknown]
  - Fall [Recovered/Resolved]
  - Feeling hot [Recovering/Resolving]
  - Infusion related reaction [Recovering/Resolving]
  - Cold sweat [Recovered/Resolved]
  - Dry skin [Unknown]
  - Laceration [Recovering/Resolving]
